FAERS Safety Report 5197082-9 (Version None)
Quarter: 2007Q1

REPORT INFORMATION
  Report Type: 
  Country: None (occurrence: None)
  Receive Date: 20070103
  Receipt Date: 20061220
  Transmission Date: 20070707
  Serious: Yes (Death, Hospitalization, Disabling, Other)
  Sender: FDA-Public Use
  Company Number: JP-ELI_LILLY_AND_COMPANY-JP200608001088

PATIENT
  Age: 75 Year
  Sex: Male

DRUGS (1)
  1. GEMCITABINE HCL [Suspect]
     Indication: BILE DUCT CANCER
     Dosage: 800 MG, OTHER
     Route: 042
     Dates: start: 20060727, end: 20060727

REACTIONS (4)
  - CEREBRAL INFARCTION [None]
  - DEATH [None]
  - RENAL INFARCT [None]
  - SPLENIC INFARCTION [None]
